FAERS Safety Report 7244033-9 (Version None)
Quarter: 2011Q1

REPORT INFORMATION
  Report Type: 
  Country: None (occurrence: None)
  Receive Date: 20110125
  Receipt Date: 20110111
  Transmission Date: 20110831
  Serious: Yes (Hospitalization, Other)
  Sender: FDA-Public Use
  Company Number: US-ELI_LILLY_AND_COMPANY-US201010001096

PATIENT
  Sex: Female

DRUGS (14)
  1. FORTAMET [Concomitant]
     Dosage: 500 MG, 2/D
  2. CENTRUM SILVER [Concomitant]
  3. FUROSEMIDE [Concomitant]
     Dosage: 20 MG, DAILY (1/D)
  4. GLIMEPIRIDE [Concomitant]
     Dosage: 4 MG, 2/D
  5. FORTEO [Suspect]
     Indication: OSTEOPOROSIS
     Dosage: 20 UG, DAILY (1/D)
     Dates: start: 20090601
  6. LANOXIN [Concomitant]
     Dosage: 0.125 MG, DAILY (1/D)
  7. LISINOPRIL [Concomitant]
     Dosage: 20 MG, DAILY (1/D)
  8. LEVEMIR [Concomitant]
     Dosage: 50 U, 2/D
  9. CALCIUM + VITAMIN D [Concomitant]
     Dosage: 600 MG, 2/D
  10. FORTEO [Suspect]
     Dosage: 20 UG, DAILY (1/D)
  11. ASPIRIN [Concomitant]
     Dosage: 81 MG, UNK
  12. TRILIPIX [Concomitant]
     Dosage: 135 MG, DAILY (1/D)
  13. VYTORIN [Concomitant]
     Dosage: 20 MG, EACH EVENING
  14. GABAPENTIN [Concomitant]
     Dosage: 300 MG, 3/D

REACTIONS (8)
  - HYPOVENTILATION [None]
  - BLOOD GLUCOSE DECREASED [None]
  - DEHYDRATION [None]
  - CARDIAC FAILURE CONGESTIVE [None]
  - BODY TEMPERATURE DECREASED [None]
  - DRUG DOSE OMISSION [None]
  - NERVE COMPRESSION [None]
  - EXOSTOSIS [None]
